FAERS Safety Report 24195402 (Version 2)
Quarter: 2025Q1

REPORT INFORMATION
  Report Type: Spontaneous
  Country: US (occurrence: US)
  Receive Date: 20240809
  Receipt Date: 20250206
  Transmission Date: 20250409
  Serious: No
  Sender: EMD SERONO INC
  Company Number: US-Merck Healthcare KGaA-2024041611

PATIENT
  Age: 51 Year
  Sex: Male

DRUGS (2)
  1. SEROSTIM [Suspect]
     Active Substance: SOMATROPIN
     Indication: HIV infection
     Dosage: EXPIRY DATE: 31-JAN-2027
  2. SEROSTIM [Suspect]
     Active Substance: SOMATROPIN
     Indication: Cachexia

REACTIONS (6)
  - Weight decreased [Unknown]
  - Mania [Unknown]
  - Blood pressure increased [Unknown]
  - Illness [Unknown]
  - Borderline personality disorder [Unknown]
  - Treatment noncompliance [Unknown]
